FAERS Safety Report 26102783 (Version 2)
Quarter: 2025Q4

REPORT INFORMATION
  Report Type: Spontaneous
  Country: JP (occurrence: JP)
  Receive Date: 20251128
  Receipt Date: 20251204
  Transmission Date: 20260117
  Serious: Yes (Other)
  Sender: PFIZER
  Company Number: JP-ONO-2025JP021620

PATIENT
  Age: 77 Year
  Sex: Female

DRUGS (2)
  1. BRAFTOVI [Suspect]
     Active Substance: ENCORAFENIB
     Indication: Colon cancer
     Dosage: 300 MG
     Route: 048
     Dates: start: 20251009, end: 20251104
  2. CETUXIMAB [Suspect]
     Active Substance: CETUXIMAB
     Indication: Colon cancer
     Dosage: UNK
     Route: 065
     Dates: start: 20251009, end: 20251104

REACTIONS (6)
  - Ventricular dyssynchrony [Recovered/Resolved]
  - Arrhythmia [Unknown]
  - Ventricular extrasystoles [Unknown]
  - Brain natriuretic peptide increased [Recovered/Resolved]
  - Palpitations [Recovered/Resolved]
  - Extrasystoles [Recovered/Resolved]

NARRATIVE: CASE EVENT DATE: 20251024
